FAERS Safety Report 12998331 (Version 1)
Quarter: 2016Q4

REPORT INFORMATION
  Report Type: Report from Study
  Country: US (occurrence: US)
  Receive Date: 20161205
  Receipt Date: 20161205
  Transmission Date: 20170207
  Serious: Yes (Hospitalization)
  Sender: FDA-Public Use
  Company Number: US-EISAI MEDICAL RESEARCH-EC-2016-022825

PATIENT
  Age: 63 Year
  Sex: Female
  Weight: 129.7 kg

DRUGS (30)
  1. ZYRTEC [Concomitant]
     Active Substance: CETIRIZINE HYDROCHLORIDE
  2. ENOXAPARIN SODIUM. [Concomitant]
     Active Substance: ENOXAPARIN SODIUM
  3. HYDROCORTISONE. [Concomitant]
     Active Substance: HYDROCORTISONE
  4. SYNTHROID [Concomitant]
     Active Substance: LEVOTHYROXINE SODIUM
  5. MULTIVITAMIN [Concomitant]
     Active Substance: VITAMINS
  6. ADVAIR HFA [Concomitant]
     Active Substance: FLUTICASONE PROPIONATE\SALMETEROL XINAFOATE
  7. TYLENOL [Concomitant]
     Active Substance: ACETAMINOPHEN
  8. LIDODERM [Concomitant]
     Active Substance: LIDOCAINE
  9. ROXICODONE [Concomitant]
     Active Substance: OXYCODONE HYDROCHLORIDE
  10. LENVATINIB [Suspect]
     Active Substance: LENVATINIB
     Indication: BREAST CANCER METASTATIC
     Route: 048
     Dates: start: 20161124, end: 20161125
  11. CALCIUM CARBONATE. [Concomitant]
     Active Substance: CALCIUM CARBONATE
  12. OXYCONTIN [Concomitant]
     Active Substance: OXYCODONE HYDROCHLORIDE
  13. TESSALON [Concomitant]
     Active Substance: BENZONATATE
  14. LASIX [Concomitant]
     Active Substance: FUROSEMIDE
  15. MAPAP [Concomitant]
     Active Substance: ACETAMINOPHEN
  16. KLOR-CON [Concomitant]
     Active Substance: POTASSIUM CHLORIDE
  17. DEEP SEA NASAL SPRAY [Concomitant]
  18. SENNALAX-S [Concomitant]
     Active Substance: DOCUSATE SODIUM\SENNOSIDES
  19. ERIBULIN [Suspect]
     Active Substance: ERIBULIN
     Indication: BREAST CANCER METASTATIC
     Route: 041
     Dates: start: 20161123
  20. FLONASE [Concomitant]
     Active Substance: FLUTICASONE PROPIONATE
  21. LYRICA [Concomitant]
     Active Substance: PREGABALIN
  22. SINGULAIR [Concomitant]
     Active Substance: MONTELUKAST SODIUM
  23. ALBUTEROL-IPRATROPIUM [Concomitant]
  24. PRILOSEC [Concomitant]
     Active Substance: OMEPRAZOLE MAGNESIUM
  25. ZOFRAN ODT [Concomitant]
     Active Substance: ONDANSETRON HYDROCHLORIDE
  26. KLONOPIN [Concomitant]
     Active Substance: CLONAZEPAM
  27. LEXAPRO [Concomitant]
     Active Substance: ESCITALOPRAM OXALATE
  28. COMPAZINE [Concomitant]
     Active Substance: PROCHLORPERAZINE MALEATE
  29. MOTRIN [Concomitant]
     Active Substance: IBUPROFEN
  30. ATROVENT [Concomitant]
     Active Substance: IPRATROPIUM BROMIDE

REACTIONS (1)
  - Febrile neutropenia [Recovered/Resolved]

NARRATIVE: CASE EVENT DATE: 20161125
